FAERS Safety Report 8590132 (Version 3)
Quarter: 2014Q1

REPORT INFORMATION
  Report Type: Spontaneous
  Country: US (occurrence: US)
  Receive Date: 20120601
  Receipt Date: 20140107
  Transmission Date: 20141002
  Serious: Yes (Disabling)
  Sender: FDA-Public Use
  Company Number: US-ASTRAZENECA-2012SE34557

PATIENT
  Age: 51 Year
  Sex: Female

DRUGS (17)
  1. NEXIUM [Suspect]
     Indication: GASTROOESOPHAGEAL REFLUX DISEASE
     Dosage: ONCE A DAY
     Route: 048
     Dates: start: 1999, end: 2002
  2. NEXIUM [Suspect]
     Indication: GASTROOESOPHAGEAL REFLUX DISEASE
     Route: 048
     Dates: start: 20010622
  3. OMEPRAZOLE [Suspect]
     Route: 048
  4. OMEPRAZOLE [Suspect]
     Route: 048
     Dates: start: 20010112
  5. FLEXERIL/ CYCLOBENZAPRINE [Concomitant]
     Indication: MUSCLE SPASMS
  6. FLEXERIL/ CYCLOBENZAPRINE [Concomitant]
     Indication: MUSCLE SPASMS
     Dates: start: 20010112
  7. NAPROXEN [Concomitant]
  8. SIMVASTATIN [Concomitant]
     Route: 048
  9. LISINOPRIL [Concomitant]
     Route: 048
  10. HCT [Concomitant]
  11. ALBUTEROL [Concomitant]
  12. TRAZONE/TRAZADONE [Concomitant]
  13. TRAZONE/TRAZADONE [Concomitant]
     Dates: start: 20010216
  14. ZOLOFT [Concomitant]
     Route: 048
  15. POTASSIUM [Concomitant]
  16. VITAMIN D 2 [Concomitant]
     Route: 048
     Dates: start: 20120226
  17. SALSALATE [Concomitant]

REACTIONS (13)
  - Back injury [Unknown]
  - Carpal tunnel syndrome [Unknown]
  - Fibromyalgia [Unknown]
  - Osteoporosis [Unknown]
  - Bone pain [Unknown]
  - Calcium deficiency [Unknown]
  - Fall [Unknown]
  - Glucose tolerance impaired [Unknown]
  - Hand fracture [Unknown]
  - Osteoarthritis [Unknown]
  - Rheumatoid arthritis [Unknown]
  - Upper limb fracture [Unknown]
  - Vitamin D deficiency [Unknown]
